FAERS Safety Report 6300693-8 (Version None)
Quarter: 2009Q3

REPORT INFORMATION
  Report Type: 
  Country: None (occurrence: None)
  Receive Date: 20090807
  Receipt Date: 20090803
  Transmission Date: 20100115
  Serious: Yes (Hospitalization)
  Sender: FDA-Public Use
  Company Number: US-BIOGENIDEC-2009BI023958

PATIENT
  Age: 64 Year
  Sex: Male

DRUGS (1)
  1. TYSABRI [Suspect]
     Indication: MULTIPLE SCLEROSIS
     Route: 042
     Dates: start: 20060101

REACTIONS (8)
  - BACK PAIN [None]
  - CEREBROVASCULAR ACCIDENT [None]
  - ENDOCARDITIS BACTERIAL [None]
  - HYPERHIDROSIS [None]
  - MALAISE [None]
  - STREPTOCOCCAL INFECTION [None]
  - VERTIGO [None]
  - WHITE BLOOD CELL COUNT INCREASED [None]
